FAERS Safety Report 4597966-6 (Version None)
Quarter: 2005Q1

REPORT INFORMATION
  Report Type: 
  Country: None (occurrence: None)
  Receive Date: 20050301
  Receipt Date: 20050217
  Transmission Date: 20050727
  Serious: No
  Sender: FDA-Public Use
  Company Number: MK200502-0181-1

PATIENT
  Age: 2 Day
  Sex: Male

DRUGS (1)
  1. ANAFRANIL [Suspect]
     Dosage: 25-75 MG QD, IN UTERO
     Dates: start: 20041101, end: 20050122

REACTIONS (9)
  - AGITATION NEONATAL [None]
  - CAESAREAN SECTION [None]
  - DRUG EXPOSURE DURING PREGNANCY [None]
  - DRUG WITHDRAWAL SYNDROME NEONATAL [None]
  - NEONATAL TACHYCARDIA [None]
  - OPISTHOTONUS [None]
  - PREGNANCY [None]
  - PREMATURE BABY [None]
  - TREMOR NEONATAL [None]
